FAERS Safety Report 19941396 (Version 2)
Quarter: 2021Q4

REPORT INFORMATION
  Report Type: Spontaneous
  Country: ES (occurrence: ES)
  Receive Date: 20211011
  Receipt Date: 20211022
  Transmission Date: 20220303
  Serious: Yes (Other)
  Sender: FDA-Public Use
  Company Number: ES-RECORDATI-2021001772

PATIENT
  Age: 26 Year
  Sex: Male
  Weight: 80 kg

DRUGS (5)
  1. SERTRALINE [Suspect]
     Active Substance: SERTRALINE HYDROCHLORIDE
     Indication: Obsessive-compulsive disorder
     Dosage: 200 MILLIGRAM
     Dates: start: 20201005
  2. CARIPRAZINE [Suspect]
     Active Substance: CARIPRAZINE
     Indication: Obsessive-compulsive disorder
     Dosage: 1 DOSAGE FORM
     Route: 048
     Dates: start: 20210212, end: 20210326
  3. CLORAZEPATE DIPOTASSIUM [Concomitant]
     Active Substance: CLORAZEPATE DIPOTASSIUM
     Indication: Product used for unknown indication
     Dosage: UNK (10 MG TO 20 MG)
     Dates: start: 20201210
  4. AZITHROMYCIN AB [Concomitant]
     Indication: Product used for unknown indication
     Dosage: UNK
     Dates: start: 20210315, end: 20210315
  5. CEFTRIAXONE [Concomitant]
     Active Substance: CEFTRIAXONE
     Indication: Product used for unknown indication
     Dosage: UNK
     Dates: start: 20210315, end: 20210315

REACTIONS (5)
  - Hypertransaminasaemia [Recovering/Resolving]
  - Gamma-glutamyltransferase increased [Recovering/Resolving]
  - Condition aggravated [Recovering/Resolving]
  - Blood alkaline phosphatase increased [Recovering/Resolving]
  - Off label use [Recovered/Resolved]

NARRATIVE: CASE EVENT DATE: 20210326
